FAERS Safety Report 13739008 (Version 1)
Quarter: 2017Q3

REPORT INFORMATION
  Report Type: Report from Study
  Country: US (occurrence: US)
  Receive Date: 20170710
  Receipt Date: 20170710
  Transmission Date: 20171127
  Serious: Yes (Other)
  Sender: FDA-Public Use
  Company Number: US-SAOL THERAPEUTICS-2017SAO00474

PATIENT
  Age: 66 Year
  Sex: Female

DRUGS (48)
  1. COMPOUNDED BACLOFEN [Suspect]
     Active Substance: BACLOFEN
     Dosage: 70.92 ?G, \DAY
     Route: 037
     Dates: start: 20161026, end: 20161108
  2. HYDROMORPHONE [Suspect]
     Active Substance: HYDROMORPHONE
     Dosage: 0.22363 MG, \DAY
     Route: 037
     Dates: start: 20160526, end: 20160613
  3. HYDROMORPHONE [Suspect]
     Active Substance: HYDROMORPHONE
     Dosage: 0.15990 MG, \DAY
     Route: 037
     Dates: start: 20160613
  4. CLONIDINE. [Suspect]
     Active Substance: CLONIDINE
     Dosage: 154.88 ?G, \DAY
     Route: 037
     Dates: start: 20160613
  5. COMPOUNDED BACLOFEN [Suspect]
     Active Substance: BACLOFEN
     Dosage: 46.89 ?G, \DAY
     Route: 037
     Dates: start: 20160526, end: 20160613
  6. COMPOUNDED BACLOFEN [Suspect]
     Active Substance: BACLOFEN
     Dosage: 83.86 ?G, \DAY
     Route: 037
     Dates: start: 20160526, end: 20160613
  7. COMPOUNDED BACLOFEN [Suspect]
     Active Substance: BACLOFEN
     Dosage: 30.04 ?G, \DAY
     Route: 037
     Dates: start: 20161108
  8. HYDROMORPHONE [Suspect]
     Active Substance: HYDROMORPHONE
     Dosage: 0.22767 MG, \DAY
     Route: 037
     Dates: start: 20151008
  9. CLONIDINE. [Suspect]
     Active Substance: CLONIDINE
     Dosage: 75.2 ?G, \DAY
     Route: 037
     Dates: start: 20160526, end: 20160613
  10. BUPIVACAINE. [Suspect]
     Active Substance: BUPIVACAINE
     Dosage: 5.375 MG, \DAY
     Route: 037
     Dates: start: 20161108
  11. COMPOUNDED BACLOFEN [Suspect]
     Active Substance: BACLOFEN
     Dosage: 89.94 ?G, \DAY
     Route: 037
     Dates: start: 20150824, end: 20151008
  12. HYDROMORPHONE [Suspect]
     Active Substance: HYDROMORPHONE
     Dosage: 0.12503 MG, \DAY
     Route: 037
     Dates: start: 20160526, end: 20160613
  13. BUPIVACAINE. [Suspect]
     Active Substance: BUPIVACAINE
     Dosage: 7.744 MG, \DAY
     Route: 037
     Dates: start: 20160613
  14. COMPOUNDED BACLOFEN [Suspect]
     Active Substance: BACLOFEN
     Dosage: 59.96 ?G, \DAY
     Route: 037
     Dates: start: 20160613
  15. COMPOUNDED BACLOFEN [Suspect]
     Active Substance: BACLOFEN
     Dosage: 67.19 ?G, \DAY
     Route: 037
     Dates: start: 20161108
  16. COMPOUNDED BACLOFEN [Suspect]
     Active Substance: BACLOFEN
     Dosage: 85.38 ?G, \DAY
     Route: 037
     Dates: start: 20151008
  17. CLONIDINE. [Suspect]
     Active Substance: CLONIDINE
     Dosage: 134.18 ?G, \DAY
     Route: 037
     Dates: start: 20160526, end: 20160613
  18. CLONIDINE. [Suspect]
     Active Substance: CLONIDINE
     Dosage: 134.91 ?G, \DAY
     Route: 037
     Dates: start: 20150824, end: 20151008
  19. BUPIVACAINE. [Suspect]
     Active Substance: BUPIVACAINE
     Dosage: 3.751 MG, \DAY
     Route: 037
     Dates: start: 20160526, end: 20160613
  20. BUPIVACAINE. [Suspect]
     Active Substance: BUPIVACAINE
     Dosage: 4.797 MG, \DAY
     Route: 037
     Dates: start: 20160613
  21. COMPOUNDED BACLOFEN [Suspect]
     Active Substance: BACLOFEN
     Dosage: 96.80 ?G, \DAY
     Route: 037
     Dates: start: 20160613
  22. HYDROMORPHONE [Suspect]
     Active Substance: HYDROMORPHONE
     Dosage: 0.23984 MG, \DAY
     Route: 037
     Dates: start: 20150824
  23. HYDROMORPHONE [Suspect]
     Active Substance: HYDROMORPHONE
     Dosage: 0.63443 MG, \DAY
     Route: 037
     Dates: start: 20150824, end: 20151008
  24. CLONIDINE. [Suspect]
     Active Substance: CLONIDINE
     Dosage: 95.94 ?G, \DAY
     Route: 037
     Dates: start: 20160613
  25. CLONIDINE. [Suspect]
     Active Substance: CLONIDINE
     Dosage: 54.09 ?G, \DAY
     Route: 037
     Dates: start: 20161026, end: 20161108
  26. CLONIDINE. [Suspect]
     Active Substance: CLONIDINE
     Dosage: 113.47 ?G, \DAY
     Route: 037
     Dates: start: 20161026, end: 20161108
  27. CLONIDINE. [Suspect]
     Active Substance: CLONIDINE
     Dosage: 356.87 ?G, \DAY
     Route: 037
     Dates: start: 20150824, end: 20151008
  28. CLONIDINE. [Suspect]
     Active Substance: CLONIDINE
     Dosage: 128.07 ?G, \DAY
     Route: 037
     Dates: start: 20151008
  29. CLONIDINE. [Suspect]
     Active Substance: CLONIDINE
     Dosage: 350.16 ?G, \DAY
     Route: 037
     Dates: start: 20151008
  30. BUPIVACAINE. [Suspect]
     Active Substance: BUPIVACAINE
     Dosage: 6.709 MG, \DAY
     Route: 037
     Dates: start: 20160526, end: 20160613
  31. COMPOUNDED BACLOFEN [Suspect]
     Active Substance: BACLOFEN
     Dosage: 237.91 ?G, \DAY
     Route: 037
     Dates: start: 20150824, end: 20151008
  32. HYDROMORPHONE [Suspect]
     Active Substance: HYDROMORPHONE
     Dosage: 0.09015 ?G, \DAY
     Route: 037
     Dates: start: 20161026, end: 20161108
  33. HYDROMORPHONE [Suspect]
     Active Substance: HYDROMORPHONE
     Dosage: 0.18911 MG, \DAY
     Route: 037
     Dates: start: 20161026, end: 20161108
  34. HYDROMORPHONE [Suspect]
     Active Substance: HYDROMORPHONE
     Dosage: 0.08012 MG, \DAY
     Route: 037
     Dates: start: 20161108
  35. HYDROMORPHONE [Suspect]
     Active Substance: HYDROMORPHONE
     Dosage: 0.62251 MG, \DAY
     Route: 037
     Dates: start: 20151008
  36. CLONIDINE. [Suspect]
     Active Substance: CLONIDINE
     Dosage: 48.07 ?G, \DAY
     Route: 037
     Dates: start: 20161108
  37. BUPIVACAINE. [Suspect]
     Active Substance: BUPIVACAINE
     Dosage: 19.454 MG, \DAY
     Route: 037
     Dates: start: 20150824, end: 20151008
  38. HYDROMORPHONE [Suspect]
     Active Substance: HYDROMORPHONE
     Dosage: 0.25813 MG, \DAY
     Route: 037
     Dates: start: 20160613
  39. BUPIVACAINE. [Suspect]
     Active Substance: BUPIVACAINE
     Dosage: 5.673 MG, \DAY
     Route: 037
     Dates: start: 20161026, end: 20161108
  40. BUPIVACAINE. [Suspect]
     Active Substance: BUPIVACAINE
     Dosage: 2.403 MG, \DAY
     Route: 037
     Dates: start: 20161108
  41. BUPIVACAINE. [Suspect]
     Active Substance: BUPIVACAINE
     Dosage: 19.454 MG, \DAY
     Route: 037
     Dates: start: 20151008
  42. COMPOUNDED BACLOFEN [Suspect]
     Active Substance: BACLOFEN
     Dosage: 33.81 ?G, \DAY
     Route: 037
     Dates: start: 20161026, end: 20161108
  43. COMPOUNDED BACLOFEN [Suspect]
     Active Substance: BACLOFEN
     Dosage: 233.44 ?G, \DAY
     Route: 037
     Dates: start: 20151008
  44. HYDROMORPHONE [Suspect]
     Active Substance: HYDROMORPHONE
     Dosage: 0.17918 MG, \DAY
     Route: 037
     Dates: start: 20161108
  45. CLONIDINE. [Suspect]
     Active Substance: CLONIDINE
     Dosage: 107.51 ?G, \DAY
     Route: 037
     Dates: start: 20161108
  46. BUPIVACAINE. [Suspect]
     Active Substance: BUPIVACAINE
     Dosage: 2.705 MG, \DAY
     Route: 037
     Dates: start: 20161026, end: 20161108
  47. BUPIVACAINE. [Suspect]
     Active Substance: BUPIVACAINE
     Dosage: 7.495 MG, \DAY
     Route: 037
     Dates: start: 20150824, end: 20151008
  48. BUPIVACAINE. [Suspect]
     Active Substance: BUPIVACAINE
     Dosage: 7.115 MG, \DAY
     Route: 037
     Dates: start: 20151008

REACTIONS (5)
  - Depression [Recovered/Resolved]
  - Drug withdrawal syndrome [Recovered/Resolved]
  - Somnolence [Recovered/Resolved]
  - Pain [Recovered/Resolved]
  - Agitation [Recovered/Resolved]

NARRATIVE: CASE EVENT DATE: 20151008
